FAERS Safety Report 12631198 (Version 2)
Quarter: 2016Q3

REPORT INFORMATION
  Report Type: Spontaneous
  Country: US (occurrence: US)
  Receive Date: 20160808
  Receipt Date: 20160808
  Transmission Date: 20161109
  Serious: No
  Sender: FDA-Public Use
  Company Number: US-BEH-2015052748

PATIENT
  Sex: Female

DRUGS (1)
  1. HIZENTRA [Suspect]
     Active Substance: HUMAN IMMUNOGLOBULIN G
     Indication: PRODUCT USED FOR UNKNOWN INDICATION

REACTIONS (8)
  - Gastrointestinal pain [Unknown]
  - Abnormal faeces [Unknown]
  - Administration site odour [Unknown]
  - Infusion site pain [Unknown]
  - Unevaluable event [Unknown]
  - Infusion site extravasation [Unknown]
  - Abdominal distension [Unknown]
  - Contusion [Unknown]
